FAERS Safety Report 7222937-0 (Version None)
Quarter: 2011Q1

REPORT INFORMATION
  Report Type: 
  Country: None (occurrence: None)
  Receive Date: 20110112
  Receipt Date: 20101227
  Transmission Date: 20110831
  Serious: No
  Sender: FDA-Public Use
  Company Number: US-B.I. PHARMACEUTICALS,INC./RIDGEFIELD-2011-BP-00194BP

PATIENT
  Sex: Female

DRUGS (6)
  1. OXYGEN [Concomitant]
     Indication: DYSPNOEA
     Dosage: 3LITERS AT NIGHT
  2. PRADAXA [Suspect]
     Indication: ATRIAL FIBRILLATION
     Dosage: 300 MG
     Route: 048
     Dates: start: 20101207
  3. DIGOXIN [Concomitant]
     Indication: HEART RATE IRREGULAR
     Dosage: 0.125 MG
     Route: 048
  4. ALBUTEROL [Concomitant]
     Indication: DYSPNOEA
     Route: 055
  5. PRILOSEC [Concomitant]
     Indication: DYSPEPSIA
     Dosage: 20.6 MG
     Route: 048
  6. CARTIA XT [Concomitant]
     Indication: CHEST PAIN
     Route: 048

REACTIONS (2)
  - DYSPEPSIA [None]
  - HEADACHE [None]
